FAERS Safety Report 15663740 (Version 1)
Quarter: 2018Q4

REPORT INFORMATION
  Report Type: Spontaneous
  Country: US (occurrence: US)
  Receive Date: 20181128
  Receipt Date: 20181128
  Transmission Date: 20190205
  Serious: Yes (Death, Hospitalization)
  Sender: FDA-Public Use
  Company Number: US-TEVA-2018-US-980537

PATIENT
  Age: 78 Year
  Sex: Male

DRUGS (3)
  1. ASPIRIN. [Concomitant]
     Active Substance: ASPIRIN
     Indication: PROPHYLAXIS
     Route: 065
  2. HEPARIN [Suspect]
     Active Substance: HEPARIN SODIUM
     Indication: ANTICOAGULANT THERAPY
     Dosage: RECEIVED ONLY 2 DOSES (DURING CORONARY ANGIOGRAPHY AND DURING TAVR)
     Route: 065
  3. WARFARIN [Concomitant]
     Active Substance: WARFARIN
     Indication: PROPHYLAXIS
     Route: 065

REACTIONS (11)
  - Lung infiltration [Unknown]
  - Embolism [Unknown]
  - Heparin-induced thrombocytopenia [Unknown]
  - Cerebrovascular accident [Unknown]
  - Ischaemic hepatitis [Unknown]
  - Cardiac failure [Unknown]
  - Septic shock [Fatal]
  - Haemolysis [Unknown]
  - Calcium embolism [Unknown]
  - Multiple organ dysfunction syndrome [Fatal]
  - Haematoma [Unknown]
